FAERS Safety Report 10174018 (Version 1)
Quarter: 2014Q2

REPORT INFORMATION
  Report Type: Spontaneous
  Country: CA (occurrence: CA)
  Receive Date: 20140515
  Receipt Date: 20140515
  Transmission Date: 20141212
  Serious: Yes (Hospitalization)
  Sender: FDA-Public Use
  Company Number: CA-B.I. PHARMACEUTICALS,INC./RIDGEFIELD-2014-BI-21236CN

PATIENT
  Age: 84 Year
  Sex: Male

DRUGS (1)
  1. PRADAXA [Suspect]
     Indication: PRODUCT USED FOR UNKNOWN INDICATION
     Route: 065

REACTIONS (2)
  - Cerebrovascular accident [Unknown]
  - Gastrointestinal haemorrhage [Unknown]
